FAERS Safety Report 9068366 (Version 1)
Quarter: 2013Q1

REPORT INFORMATION
  Report Type: Spontaneous
  Country: US (occurrence: None)
  Receive Date: 20130212
  Receipt Date: 20130212
  Transmission Date: 20140127
  Serious: Yes (Disabling, Other)
  Sender: FDA-Public Use
  Company Number: None

PATIENT
  Age: 55 Year
  Sex: Female
  Weight: 72.58 kg

DRUGS (1)
  1. CYMBALTA [Suspect]
     Dates: start: 20080308, end: 20090128

REACTIONS (4)
  - Personality change [None]
  - Disturbance in attention [None]
  - Anxiety [None]
  - Suicidal ideation [None]
